FAERS Safety Report 20730753 (Version 2)
Quarter: 2024Q2

REPORT INFORMATION
  Report Type: Spontaneous
  Country: US (occurrence: US)
  Receive Date: 20220420
  Receipt Date: 20240415
  Transmission Date: 20240716
  Serious: Yes (Other)
  Sender: FDA-Public Use
  Company Number: US-ASTELLAS-2022US006119

PATIENT
  Age: 73 Year
  Sex: Male

DRUGS (27)
  1. LEXISCAN [Suspect]
     Active Substance: REGADENOSON
     Indication: Scan myocardial perfusion
     Dosage: 0.4 MG/ 5ML X 1 DOSE, UNKNOWN FREQ.
     Route: 042
     Dates: start: 20220211, end: 20220211
  2. LEXISCAN [Suspect]
     Active Substance: REGADENOSON
     Indication: Scan myocardial perfusion
     Dosage: 0.4 MG/ 5ML X 1 DOSE, UNKNOWN FREQ.
     Route: 042
     Dates: start: 20220211, end: 20220211
  3. LEXISCAN [Suspect]
     Active Substance: REGADENOSON
     Indication: Scan myocardial perfusion
     Dosage: 0.4 MG/ 5ML X 1 DOSE, UNKNOWN FREQ.
     Route: 042
     Dates: start: 20220211, end: 20220211
  4. LEXISCAN [Suspect]
     Active Substance: REGADENOSON
     Indication: Scan myocardial perfusion
     Dosage: 0.4 MG/ 5ML X 1 DOSE, UNKNOWN FREQ.
     Route: 042
     Dates: start: 20220211, end: 20220211
  5. NEXIUM [Concomitant]
     Active Substance: ESOMEPRAZOLE MAGNESIUM
     Indication: Gastrooesophageal reflux disease
     Dosage: 20 MG, ONCE DAILY (ENTERIC COATED)
     Route: 048
  6. ROPINIROLE HYDROCHLORIDE [Concomitant]
     Active Substance: ROPINIROLE HYDROCHLORIDE
     Indication: Product used for unknown indication
     Dosage: UNK UNK, UNKNOWN FREQ.
     Route: 065
  7. CALCIUM\MAGNESIUM\VITAMIN D\ZINC [Concomitant]
     Active Substance: CALCIUM\MAGNESIUM\VITAMIN D\ZINC
     Indication: Product used for unknown indication
     Dosage: UNK UNK, UNKNOWN FREQ.
     Route: 065
  8. VITAMIN D3 [Concomitant]
     Active Substance: CHOLECALCIFEROL
     Indication: Product used for unknown indication
     Route: 048
  9. CHANTIX [Concomitant]
     Active Substance: VARENICLINE TARTRATE
     Indication: Product used for unknown indication
     Route: 048
  10. LOSARTAN POTASSIUM AND HYDROCHLOROTHIAZIDE [Concomitant]
     Active Substance: HYDROCHLOROTHIAZIDE\LOSARTAN POTASSIUM
     Indication: Hypertension
     Dosage: 1 DF, ONCE DAILY (50-12.5 MG)
     Route: 048
  11. ROSUVASTATIN CALCIUM [Concomitant]
     Active Substance: ROSUVASTATIN CALCIUM
     Indication: Product used for unknown indication
     Route: 065
  12. FLOMAX [Concomitant]
     Active Substance: TAMSULOSIN HYDROCHLORIDE
     Indication: Product used for unknown indication
     Dosage: 0.4 MG, ONCE DAILY (NIGHTLY)
     Route: 048
  13. ATENOLOL [Concomitant]
     Active Substance: ATENOLOL
     Indication: Hypertension
     Dosage: 25 MG, THRICE DAILY (DISCONTINUED)
     Route: 065
  14. FENOFIBRATE [Concomitant]
     Active Substance: FENOFIBRATE
     Indication: Product used for unknown indication
     Route: 048
  15. CALCIUM [Concomitant]
     Active Substance: CALCIUM
     Indication: Product used for unknown indication
     Dosage: UNK UNK, UNKNOWN FREQ.
     Route: 065
  16. ALBUTEROL SULFATE [Concomitant]
     Active Substance: ALBUTEROL SULFATE
     Indication: Cough
     Dosage: 2 PUFFS, OTHER (AS NEEDED EVERY 6 HOURS)
     Route: 050
  17. ALBUTEROL SULFATE [Concomitant]
     Active Substance: ALBUTEROL SULFATE
     Indication: Wheezing
  18. SPIRIVA RESPIMAT [Concomitant]
     Active Substance: TIOTROPIUM BROMIDE
     Indication: Product used for unknown indication
     Dosage: 2 PUFFS, ONCE DAILY (1.25 MCG/ACT)
     Route: 050
  19. SYMBICORT [Concomitant]
     Active Substance: BUDESONIDE\FORMOTEROL FUMARATE DIHYDRATE
     Indication: Product used for unknown indication
     Dosage: 2 PUFFS, TWICE DAILY (160-4.5 MCG/ACT)
     Route: 050
  20. IBUPROFEN [Concomitant]
     Active Substance: IBUPROFEN
     Indication: Product used for unknown indication
     Dosage: 600 MG, OTHER (AS NEEDED, THREE TIMES A DAY)
     Route: 048
  21. MAGNESIUM [Concomitant]
     Active Substance: MAGNESIUM
     Indication: Product used for unknown indication
     Dosage: UNK UNK, UNKNOWN FREQ.
     Route: 065
  22. ASPIRIN [Concomitant]
     Active Substance: ASPIRIN
     Indication: Product used for unknown indication
     Route: 048
  23. NITROGLYCERIN [Concomitant]
     Active Substance: NITROGLYCERIN
     Indication: Chest pain
     Dosage: 0.8 MG, OTHER (EVERY 5 MINS X 3 PRN)
     Route: 060
     Dates: start: 20220110
  24. OMEPRAZOLE [Concomitant]
     Active Substance: OMEPRAZOLE
     Indication: Product used for unknown indication
     Dosage: 20 MG, ONCE DAILY (30 MINS BEFORE BREAKFAST )
     Route: 048
     Dates: start: 20220110
  25. METFORMIN [Concomitant]
     Active Substance: METFORMIN HYDROCHLORIDE
     Indication: Product used for unknown indication
     Route: 048
     Dates: start: 20211202
  26. LISINOPRIL [Concomitant]
     Active Substance: LISINOPRIL
     Indication: Product used for unknown indication
     Route: 048
     Dates: start: 20210520
  27. ZOLPIDEM TARTRATE [Concomitant]
     Active Substance: ZOLPIDEM TARTRATE
     Indication: Product used for unknown indication
     Dosage: 5 MG, ONCE DAILY (AT BED TIME)
     Route: 048
     Dates: start: 20211118

REACTIONS (1)
  - Cardiac arrest [Recovered/Resolved]

NARRATIVE: CASE EVENT DATE: 20220211
